FAERS Safety Report 16497619 (Version 3)
Quarter: 2019Q3

REPORT INFORMATION
  Report Type: Spontaneous
  Country: FR (occurrence: FR)
  Receive Date: 20190628
  Receipt Date: 20190709
  Transmission Date: 20191004
  Serious: Yes (Other)
  Sender: FDA-Public Use
  Company Number: FR-ASTRAZENECA-2019SE91784

PATIENT
  Age: 63 Year
  Sex: Female

DRUGS (2)
  1. LYNPARZA [Suspect]
     Active Substance: OLAPARIB
     Indication: OVARIAN CANCER
     Dosage: 8 CAPSULE TWICE PER DAY
     Route: 048
     Dates: end: 201903
  2. LYNPARZA [Suspect]
     Active Substance: OLAPARIB
     Indication: OVARIAN CANCER
     Dosage: 6 CAPSULE TWICE PER DAY
     Route: 048
     Dates: start: 201903, end: 201906

REACTIONS (2)
  - Ovarian cancer recurrent [Unknown]
  - Off label use [Unknown]

NARRATIVE: CASE EVENT DATE: 201906
